FAERS Safety Report 7197820-X (Version None)
Quarter: 2010Q4

REPORT INFORMATION
  Report Type: 
  Country: None (occurrence: None)
  Receive Date: 20101214
  Receipt Date: 20101122
  Transmission Date: 20110411
  Serious: Yes (Death, Life-Threatening, Hospitalization, Disabling, Other)
  Sender: FDA-Public Use
  Company Number: 2010S1000377

PATIENT
  Age: 80 Year
  Sex: Male
  Weight: 75 kg

DRUGS (6)
  1. DARVOCET-N 100 [Suspect]
     Indication: ARTERIAL OCCLUSIVE DISEASE
     Dosage: ;PO
     Route: 048
     Dates: start: 20101103
  2. INTEGRIN [Suspect]
     Dates: start: 20101022
  3. PLAVIX [Suspect]
     Dates: start: 20101022
  4. ANGIOMAX [Suspect]
     Dates: start: 20101022
  5. LOVENOX [Suspect]
  6. NITROGLYCERIN [Suspect]
     Dates: start: 20101022

REACTIONS (6)
  - HAEMORRHAGE INTRACRANIAL [None]
  - HYPERSENSITIVITY [None]
  - HYPOTENSION [None]
  - INCORRECT DOSE ADMINISTERED [None]
  - MYOCARDIAL INFARCTION [None]
  - PLATELET COUNT DECREASED [None]
